FAERS Safety Report 6250888-7 (Version None)
Quarter: 2009Q2

REPORT INFORMATION
  Report Type: 
  Country: None (occurrence: None)
  Receive Date: 20090630
  Receipt Date: 20090508
  Transmission Date: 20091009
  Serious: No
  Sender: FDA-Public Use
  Company Number: US-BAUSCH-2009BL002186

PATIENT
  Age: 56 Year
  Sex: Female
  Weight: 58 kg

DRUGS (4)
  1. ALAWAY [Suspect]
     Indication: SEASONAL ALLERGY
     Route: 047
     Dates: start: 20090401, end: 20090508
  2. ALLEGRA [Concomitant]
     Indication: SEASONAL ALLERGY
     Route: 048
  3. NASONEX [Concomitant]
     Indication: SEASONAL ALLERGY
     Route: 045
  4. MULTI-VITAMINS [Concomitant]

REACTIONS (1)
  - INSTILLATION SITE IRRITATION [None]
